FAERS Safety Report 22154479 (Version 1)
Quarter: 2023Q1

REPORT INFORMATION
  Report Type: Spontaneous
  Country: US (occurrence: US)
  Receive Date: 20230330
  Receipt Date: 20230330
  Transmission Date: 20230418
  Serious: Yes (Life-Threatening, Other)
  Sender: FDA-Public Use
  Company Number: US-drreddys-LIT/USA/23/0162712

PATIENT
  Age: 23 Year
  Sex: Female

DRUGS (2)
  1. AMIODARONE HYDROCHLORIDE [Suspect]
     Active Substance: AMIODARONE HYDROCHLORIDE
     Indication: Ventricular tachycardia
  2. LIDOCAINE [Suspect]
     Active Substance: LIDOCAINE
     Indication: Ventricular tachycardia

REACTIONS (5)
  - Myocarditis [Unknown]
  - Cardiac failure congestive [Recovered/Resolved]
  - Abortion spontaneous [Unknown]
  - Drug ineffective [Unknown]
  - Exposure during pregnancy [Unknown]
